FAERS Safety Report 12461880 (Version 2)
Quarter: 2016Q2

REPORT INFORMATION
  Report Type: Report from Study
  Country: US (occurrence: US)
  Receive Date: 20160613
  Receipt Date: 20160614
  Transmission Date: 20160815
  Serious: Yes (Death, Hospitalization)
  Sender: FDA-Public Use
  Company Number: US-009507513-1606USA003449

PATIENT
  Age: 66 Year
  Sex: Male
  Weight: 59.42 kg

DRUGS (2)
  1. PEMBROLIZUMAB. [Suspect]
     Active Substance: PEMBROLIZUMAB
     Indication: SQUAMOUS CELL CARCINOMA OF HEAD AND NECK
     Dosage: 200 MG, EVERY 21 DAYS, FORMULATION: POWDER
     Route: 042
     Dates: start: 20160414, end: 20160526
  2. INCB024360 [Suspect]
     Active Substance: EPACADOSTAT
     Indication: SQUAMOUS CELL CARCINOMA OF HEAD AND NECK
     Dosage: 100 MG, BID, FORMULATION: POWDER
     Route: 048
     Dates: start: 20160414, end: 20160601

REACTIONS (6)
  - Pyrexia [Not Recovered/Not Resolved]
  - Dyspnoea [Not Recovered/Not Resolved]
  - Respiratory failure [Fatal]
  - Hypernatraemia [Not Recovered/Not Resolved]
  - Pneumonia [Fatal]
  - Hypoxia [Fatal]

NARRATIVE: CASE EVENT DATE: 2016
